FAERS Safety Report 7497396-3 (Version None)
Quarter: 2011Q2

REPORT INFORMATION
  Report Type: 
  Country: None (occurrence: None)
  Receive Date: 20110523
  Receipt Date: 20100420
  Transmission Date: 20111010
  Serious: No
  Sender: FDA-Public Use
  Company Number: US-NOVEN PHARMACEUTICAL, INC.-ALL1-2010-01511

PATIENT

DRUGS (3)
  1. DAYTRANA [Suspect]
     Indication: ATTENTION DEFICIT/HYPERACTIVITY DISORDER
     Dosage: 10 MG, 1X/DAY:QD
     Route: 062
     Dates: start: 20100201
  2. TENEX [Concomitant]
     Dosage: UNK MG, OTHER (TWO 1MG TABLETS IN THE AM AND 2 AT BEDTIME)
     Route: 048
     Dates: start: 20090401, end: 20090601
  3. TENEX [Concomitant]
     Dosage: UNK MG, OTHER (TWO 1MG IN THE AM AND THREE 1MG AT BEDTIME)
     Route: 048
     Dates: start: 20090601

REACTIONS (3)
  - ACNE [None]
  - OFF LABEL USE [None]
  - APPLICATION SITE PAIN [None]
